FAERS Safety Report 5917375-4 (Version None)
Quarter: 2008Q4

REPORT INFORMATION
  Report Type: 
  Country: None (occurrence: None)
  Receive Date: 20081014
  Receipt Date: 20081006
  Transmission Date: 20090506
  Serious: Yes (Disabling)
  Sender: FDA-Public Use
  Company Number: A0738431A

PATIENT
  Age: 42 Year
  Sex: Male
  Weight: 136.8 kg

DRUGS (3)
  1. COREG CR [Suspect]
     Dosage: 80MG PER DAY
     Route: 048
     Dates: start: 20070801
  2. LANOXIN [Concomitant]
     Dosage: .25MG PER DAY
     Route: 048
     Dates: start: 20030101
  3. LOTENSIN [Concomitant]

REACTIONS (2)
  - DIZZINESS [None]
  - PERFORMANCE STATUS DECREASED [None]
